FAERS Safety Report 10495404 (Version 1)
Quarter: 2014Q3

REPORT INFORMATION
  Report Type: Spontaneous
  Country: US (occurrence: None)
  Receive Date: 20140815
  Receipt Date: 20140815
  Transmission Date: 20150326
  Serious: Yes (Other)
  Sender: FDA-Public Use
  Company Number: ADR-2014-00860

PATIENT
  Age: 66 Year
  Sex: Male

DRUGS (1)
  1. LIORESAL [Suspect]
     Active Substance: BACLOFEN
     Indication: MUSCLE SPASTICITY
     Dosage: 796 MCG/DAY

REACTIONS (5)
  - Muscle contractions involuntary [None]
  - Urinary retention [None]
  - Decubitus ulcer [None]
  - Muscle spasticity [None]
  - Hypotonia [None]
